FAERS Safety Report 15247738 (Version 2)
Quarter: 2018Q3

REPORT INFORMATION
  Report Type: Spontaneous
  Country: US (occurrence: US)
  Receive Date: 20180807
  Receipt Date: 20180904
  Transmission Date: 20181010
  Serious: No
  Sender: FDA-Public Use
  Company Number: US-ASTRAZENECA-2018SE88813

PATIENT
  Sex: Male
  Weight: 133.8 kg

DRUGS (7)
  1. TOUJEO [Concomitant]
     Active Substance: INSULIN GLARGINE
     Dosage: AT NIGHT
     Route: 058
  2. LISINOPRIL. [Concomitant]
     Active Substance: LISINOPRIL
     Indication: HYPERTENSION
     Route: 048
  3. METFORMIN [Concomitant]
     Active Substance: METFORMIN HYDROCHLORIDE
  4. BYDUREON [Concomitant]
     Active Substance: EXENATIDE
     Indication: TYPE 2 DIABETES MELLITUS
     Route: 058
     Dates: end: 201801
  5. LIPITOR [Concomitant]
     Active Substance: ATORVASTATIN CALCIUM
     Indication: BLOOD CHOLESTEROL
  6. NOVOLOG [Concomitant]
     Active Substance: INSULIN ASPART
     Dosage: THREE TIMES A DAY
     Route: 058
  7. BYDUREON BCISE [Suspect]
     Active Substance: EXENATIDE
     Indication: TYPE 2 DIABETES MELLITUS
     Route: 058
     Dates: start: 201801

REACTIONS (4)
  - Product quality issue [Unknown]
  - Device leakage [Unknown]
  - Injection site injury [Unknown]
  - Device malfunction [Unknown]
